FAERS Safety Report 8614121 (Version 3)
Quarter: 2012Q4

REPORT INFORMATION
  Report Type: Report from Study
  Country: US (occurrence: None)
  Receive Date: 20120531
  Receipt Date: 20120926
  Transmission Date: 20130627
  Serious: Yes (Hospitalization)
  Sender: FDA-Public Use
  Company Number: DAV-AE-MTX-12-44

PATIENT
  Age: 55 Year
  Sex: Female
  Weight: 105.5 kg

DRUGS (17)
  1. METHOTREXATE SODIUM [Suspect]
     Indication: RHEUMATOID ARTHRITIS
     Route: 048
     Dates: start: 20120405, end: 20120426
  2. METHOTREXATE SODIUM [Suspect]
     Route: 048
     Dates: start: 20120405, end: 20120426
  3. METHOTREXATE SODIUM [Suspect]
     Indication: RHEUMATOID ARTHRITIS
     Dosage: (1 IN 1 WK)
     Route: 048
     Dates: start: 20120517
  4. METHOTREXATE SODIUM [Suspect]
     Dosage: (1 IN 1 WK)
     Route: 048
     Dates: start: 20120517
  5. HUMIRA [Suspect]
     Dosage: UNK (1 IN 2 WK), SC; 14 DAYS; (1 IN 2 WK), SUBCUTANEOUS
     Route: 058
     Dates: start: 20120405, end: 20120419
  6. HUMIRA [Suspect]
     Indication: RHEUMATOID ARTHRITIS
     Dosage: UNK (1 IN 2 WK), SC; 14 DAYS; (1 IN 2 WK), SUBCUTANEOUS
     Route: 058
     Dates: start: 20120405, end: 20120419
  7. HUMIRA [Suspect]
     Dosage: (1 IN 2 WK)
     Route: 058
     Dates: start: 20120517
  8. HUMIRA [Suspect]
     Indication: RHEUMATOID ARTHRITIS
     Dosage: (1 IN 2 WK)
     Route: 058
     Dates: start: 20120517
  9. HUMIRA [Suspect]
  10. HUMIRA [Suspect]
     Indication: RHEUMATOID ARTHRITIS
  11. COMMERCIAL METHOTREXATE (METHOTREXATE SODIUM) [Concomitant]
  12. BACTRIM [Concomitant]
  13. CEPHALEXIN [Concomitant]
  14. PREDNISONE [Concomitant]
  15. MELOXICAM [Concomitant]
  16. NITROGLYCERIN [Concomitant]
  17. FOLIC ACID [Concomitant]

REACTIONS (1)
  - Pneumonia legionella [None]
